FAERS Safety Report 22203352 (Version 2)
Quarter: 2023Q2

REPORT INFORMATION
  Report Type: Report from Study
  Country: US (occurrence: US)
  Receive Date: 20230412
  Receipt Date: 20230630
  Transmission Date: 20230722
  Serious: Yes (Other)
  Sender: FDA-Public Use
  Company Number: US-TAIHO-2023-001697

PATIENT
  Age: 53 Year
  Sex: Male
  Weight: 58.24 kg

DRUGS (2)
  1. LONSURF [Suspect]
     Active Substance: TIPIRACIL HYDROCHLORIDE\TRIFLURIDINE
     Indication: Rectal cancer
     Dosage: FORM STRENGTH: 15 MG AND 20 MG; CYCLE UNKNOWN
     Route: 048
     Dates: start: 20230220
  2. LONSURF [Suspect]
     Active Substance: TIPIRACIL HYDROCHLORIDE\TRIFLURIDINE
     Dosage: CYCLE UNKNOWN
     Route: 048
     Dates: end: 20230627

REACTIONS (8)
  - Thrombosis [Unknown]
  - Asthenia [Unknown]
  - Nausea [Unknown]
  - Accidental overdose [Unknown]
  - Peripheral swelling [Unknown]
  - Fatigue [Unknown]
  - Joint swelling [Unknown]
  - Disease progression [Unknown]
